FAERS Safety Report 7505691-4 (Version None)
Quarter: 2011Q2

REPORT INFORMATION
  Report Type: 
  Country: None (occurrence: None)
  Receive Date: 20110526
  Receipt Date: 20110523
  Transmission Date: 20111010
  Serious: Yes (Death, Other)
  Sender: FDA-Public Use
  Company Number: MA-PFIZER INC-2011110489

PATIENT
  Age: 28 Year
  Sex: Male
  Weight: 60 kg

DRUGS (6)
  1. METOCLOPRAMIDE [Concomitant]
     Indication: VOMITING
     Dosage: 10 MG, 3X/DAY
     Route: 042
     Dates: start: 20110510
  2. FUROSEMIDE [Concomitant]
     Indication: OLIGURIA
     Dosage: 500 MG, 1X/DAY
     Route: 042
     Dates: start: 20110512, end: 20110515
  3. OMEPRAZOLE [Concomitant]
     Indication: GASTRITIS
     Dosage: 40 MG, 1X/DAY
     Route: 042
     Dates: start: 20110510, end: 20110519
  4. VFEND [Suspect]
     Indication: OESOPHAGEAL CANDIDIASIS
     Dosage: 300 MG, 2X/DAY
     Route: 042
     Dates: start: 20110512, end: 20110513
  5. INSULIN RAPID ^HOECHST MARION ROUSSEL^ [Concomitant]
     Indication: DIABETES MELLITUS
     Dosage: 5 TO 16
     Route: 058
     Dates: start: 20110412, end: 20110519
  6. INSULIN SEMILENTE [Concomitant]
     Indication: DIABETES MELLITUS
     Dosage: 14 IU, 1X/DAY
     Dates: start: 20110412, end: 20110519

REACTIONS (3)
  - SEPTIC SHOCK [None]
  - THROMBOCYTOPENIA [None]
  - LEUKOPENIA [None]
